FAERS Safety Report 5572347-7 (Version None)
Quarter: 2007Q4

REPORT INFORMATION
  Report Type: 
  Country: None (occurrence: None)
  Receive Date: 20071219
  Receipt Date: 20071214
  Transmission Date: 20080405
  Serious: Yes (Death, Hospitalization, Other)
  Sender: FDA-Public Use
  Company Number: 2007-04189

PATIENT
  Age: 74 Year
  Sex: Male
  Weight: 49 kg

DRUGS (12)
  1. VELCADE [Suspect]
     Indication: MULTIPLE MYELOMA
     Dosage: 1.80 MG, INTRAVENOUS
     Route: 042
     Dates: start: 20070508, end: 20070511
  2. PREDNISONE [Concomitant]
  3. ROHYPNOL (FLUNITRAZEPAM) [Concomitant]
  4. URINORM (BENZBROMARONE) [Concomitant]
  5. NORVASC [Concomitant]
  6. METHYCOBAL (MECOBALAMIN) [Concomitant]
  7. AMITRIPTYLINE HCL [Concomitant]
  8. ITRACONAZOLE [Concomitant]
  9. BAKTAR (SULFAMETHOXAZOLE, TRIMETHOPRIM) [Concomitant]
  10. MAGNESIUM OXIDE (MAGNESIUM OXIDE) [Concomitant]
  11. YODEL (SENNA) [Concomitant]
  12. LOXONIN (LOXOPROFEN SODIUM) [Concomitant]

REACTIONS (4)
  - DISEASE PROGRESSION [None]
  - PLATELET COUNT DECREASED [None]
  - TUMOUR LYSIS SYNDROME [None]
  - VARICELLA [None]
